FAERS Safety Report 6841642-3 (Version None)
Quarter: 2010Q3

REPORT INFORMATION
  Report Type: 
  Country: None (occurrence: None)
  Receive Date: 20100714
  Receipt Date: 20070711
  Transmission Date: 20110219
  Serious: No
  Sender: FDA-Public Use
  Company Number: US-PFIZER INC-2007058749

PATIENT
  Sex: Male
  Weight: 77.1 kg

DRUGS (10)
  1. CHANTIX [Suspect]
     Indication: SMOKING CESSATION THERAPY
     Dates: start: 20070606, end: 20070616
  2. MORPHINE SULFATE [Concomitant]
  3. LEXAPRO [Concomitant]
  4. HYDROCHLOROTHIAZIDE [Concomitant]
  5. ZANAFLEX [Concomitant]
     Indication: MUSCLE SPASMS
  6. ALL OTHER THERAPEUTIC PRODUCTS [Concomitant]
  7. XANAX [Concomitant]
  8. MOBIC [Concomitant]
  9. ALL OTHER THERAPEUTIC PRODUCTS [Concomitant]
  10. SCOPOLAMINE [Concomitant]

REACTIONS (2)
  - DIZZINESS [None]
  - NAUSEA [None]
